FAERS Safety Report 19447922 (Version 1)
Quarter: 2021Q2

REPORT INFORMATION
  Report Type: Spontaneous
  Country: US (occurrence: US)
  Receive Date: 20210622
  Receipt Date: 20210622
  Transmission Date: 20210717
  Serious: No
  Sender: FDA-Public Use
  Company Number: None

PATIENT
  Sex: Male
  Weight: 157.5 kg

DRUGS (7)
  1. ZOFRAN 8 MG TAB [Concomitant]
  2. RITUXAN 100 [Concomitant]
  3. BETAMETHASONE 0.5% CRM [Concomitant]
  4. BRUKINSA [Suspect]
     Active Substance: ZANUBRUTINIB
     Indication: MANTLE CELL LYMPHOMA
     Route: 048
  5. BENDEKA [Concomitant]
     Active Substance: BENDAMUSTINE HYDROCHLORIDE
  6. PREDNISONE 20 MG TAB [Concomitant]
     Active Substance: PREDNISONE
  7. AUGMENTIN [Concomitant]
     Active Substance: AMOXICILLIN\CLAVULANATE POTASSIUM

REACTIONS (4)
  - Abdominal distension [None]
  - Platelet count decreased [None]
  - Nausea [None]
  - Peripheral swelling [None]
